FAERS Safety Report 10693316 (Version 1)
Quarter: 2015Q1

REPORT INFORMATION
  Report Type: Spontaneous
  Country: US (occurrence: US)
  Receive Date: 20150106
  Receipt Date: 20150106
  Transmission Date: 20150720
  Serious: No
  Sender: FDA-Public Use
  Company Number: US-TEVA-526458USA

PATIENT
  Sex: Male
  Weight: 77.63 kg

DRUGS (7)
  1. PROAIR HFA [Suspect]
     Active Substance: ALBUTEROL SULFATE
     Indication: CHRONIC OBSTRUCTIVE PULMONARY DISEASE
  2. WARFARIN [Concomitant]
     Active Substance: WARFARIN
     Dosage: 6 MG MON AND FRI 9 MG ALL OTHER DAYS
     Route: 048
  3. DIOXAN [Concomitant]
     Indication: CARDIAC FAILURE CONGESTIVE
  4. BACLOFEN. [Concomitant]
     Active Substance: BACLOFEN
     Indication: MUSCLE RELAXANT THERAPY
  5. METOPROLOL [Concomitant]
     Active Substance: METOPROLOL
     Indication: CARDIAC FAILURE CONGESTIVE
  6. ROXICODONE [Concomitant]
     Active Substance: OXYCODONE HYDROCHLORIDE
     Indication: PAIN
  7. MORPHINE [Suspect]
     Active Substance: MORPHINE

REACTIONS (4)
  - Heart rate increased [Unknown]
  - Anxiety [Unknown]
  - Oedema peripheral [Unknown]
  - Rash [Unknown]

NARRATIVE: CASE EVENT DATE: 2010
